FAERS Safety Report 9150695 (Version 1)
Quarter: 2013Q1

REPORT INFORMATION
  Report Type: Spontaneous
  Country: US (occurrence: US)
  Receive Date: 20130308
  Receipt Date: 20130308
  Transmission Date: 20140127
  Serious: No
  Sender: FDA-Public Use
  Company Number: US-ENDO PHARMACEUTICALS INC.-OPCR20121325

PATIENT
  Sex: Male

DRUGS (2)
  1. OPANA ER [Suspect]
     Indication: PAIN
     Route: 048
     Dates: start: 201206, end: 201206
  2. OPANA ER [Concomitant]
     Indication: PAIN
     Route: 048
     Dates: start: 201205, end: 201206

REACTIONS (4)
  - Migraine [Unknown]
  - Nausea [Unknown]
  - Decreased appetite [Unknown]
  - Drug effect decreased [Recovered/Resolved]
